FAERS Safety Report 8950370 (Version 1)
Quarter: 2012Q4

REPORT INFORMATION
  Report Type: 
  Country: DE (occurrence: DE)
  Receive Date: 20121207
  Receipt Date: 20121207
  Transmission Date: 20130627
  Serious: Yes (Other)
  Sender: FDA-Public Use
  Company Number: DE-JNJFOC-20121201678

PATIENT

DRUGS (9)
  1. DOXORUBICIN [Suspect]
     Indication: LYMPHOMA AIDS RELATED
     Route: 042
  2. BLEOMYCIN [Suspect]
     Indication: LYMPHOMA AIDS RELATED
     Route: 065
  3. ETOPOSIDE [Suspect]
     Indication: LYMPHOMA AIDS RELATED
     Route: 065
  4. CYCLOPHOSPHAMIDE [Suspect]
     Indication: LYMPHOMA AIDS RELATED
     Route: 065
  5. VINCRISTINE [Suspect]
     Indication: LYMPHOMA AIDS RELATED
     Route: 065
  6. PROCARBAZINE [Suspect]
     Indication: LYMPHOMA AIDS RELATED
     Route: 065
  7. PREDNISONE [Suspect]
     Indication: LYMPHOMA AIDS RELATED
     Route: 065
  8. GRANULOCYTE COLONY-STIMULATING FACTOR [Concomitant]
     Indication: PROPHYLAXIS
     Route: 065
  9. ANTIRETROVIRALS (NOS) [Concomitant]
     Indication: HIV INFECTION
     Route: 065

REACTIONS (1)
  - Toxicity to various agents [Unknown]
